FAERS Safety Report 8850257 (Version 1)
Quarter: 2012Q4

REPORT INFORMATION
  Report Type: 
  Country: US (occurrence: US)
  Receive Date: 20121019
  Receipt Date: 20121019
  Transmission Date: 20130627
  Serious: Yes (Other)
  Sender: FDA-Public Use
  Company Number: CHPA2012US021301

PATIENT
  Age: 58 Year
  Sex: Female

DRUGS (9)
  1. 4 WAY FAST ACTING NASAL SPRAY [Suspect]
     Indication: SNEEZING
     Dosage: 1 SPRAY, PRN
     Route: 045
  2. EXCEDRIN SINUS HEADACHE [Suspect]
     Indication: SINUS HEADACHE
     Dosage: Unk, PRN
     Dates: start: 2007
  3. ASPIRIN ^BAYER^ [Concomitant]
     Dosage: Unk, Unk
  4. PAPAYA ENZYME [Concomitant]
     Dosage: 5 to 6 TABLETS, AFTER MEALS PRN
     Dates: start: 1977
  5. FLONASE [Concomitant]
     Dosage: Unk, BID
     Dates: start: 2011
  6. DRUG THERAPY NOS [Concomitant]
     Dosage: UNK
     Dates: start: 201112
  7. MUCINEX [Concomitant]
     Dosage: Unk, Unk
  8. AFRIN MOISTURIZING SALINE MIST [Concomitant]
     Dosage: Unk, Unk
  9. ANTIBIOTICS [Concomitant]
     Dosage: Unk,Unk

REACTIONS (13)
  - Dental caries [Unknown]
  - Nail injury [Recovered/Resolved]
  - Migraine [Not Recovered/Not Resolved]
  - Anaesthetic complication [Recovered/Resolved]
  - Dry mouth [Not Recovered/Not Resolved]
  - Sinus disorder [Not Recovered/Not Resolved]
  - Dyspnoea [Not Recovered/Not Resolved]
  - Gingival inflammation [Not Recovered/Not Resolved]
  - Poor quality sleep [Not Recovered/Not Resolved]
  - Hot flush [Not Recovered/Not Resolved]
  - Hyperhidrosis [Not Recovered/Not Resolved]
  - Toothache [Not Recovered/Not Resolved]
  - Mucous membrane disorder [Unknown]
